FAERS Safety Report 22517841 (Version 1)
Quarter: 2023Q2

REPORT INFORMATION
  Report Type: Report from Study
  Country: AT (occurrence: AT)
  Receive Date: 20230604
  Receipt Date: 20230604
  Transmission Date: 20230721
  Serious: Yes (Hospitalization, Other)
  Sender: FDA-Public Use
  Company Number: AT-AMGEN-AUTCT2023092887

PATIENT
  Age: 70 Year
  Sex: Male
  Weight: 69 kg

DRUGS (4)
  1. CARFILZOMIB [Suspect]
     Active Substance: CARFILZOMIB
     Indication: Waldenstrom^s macroglobulinaemia
     Dosage: 20 MILLIGRAM/SQ. METER, PER CHEMO REGIM
     Route: 042
     Dates: start: 20221012
  2. CARFILZOMIB [Suspect]
     Active Substance: CARFILZOMIB
     Dosage: 127 MILLIGRAM, PER CHEMO REGIM
     Route: 042
  3. CARFILZOMIB [Suspect]
     Active Substance: CARFILZOMIB
     Dosage: 70 MILLIGRAM/SQ. METER, PER CHEMO REGIM
     Route: 042
     Dates: end: 20230424
  4. IBRUTINIB [Suspect]
     Active Substance: IBRUTINIB
     Indication: Waldenstrom^s macroglobulinaemia
     Dosage: 420 MILLIGRAM, PER CHEMO REGIM
     Route: 048
     Dates: start: 20221012

REACTIONS (1)
  - Arrhythmia [Not Recovered/Not Resolved]

NARRATIVE: CASE EVENT DATE: 20230510
